FAERS Safety Report 7460606-2 (Version None)
Quarter: 2011Q2

REPORT INFORMATION
  Report Type: 
  Country: None (occurrence: None)
  Receive Date: 20110505
  Receipt Date: 20110427
  Transmission Date: 20111010
  Serious: Yes (Other)
  Sender: FDA-Public Use
  Company Number: US-MYLANLABS-2011S1008661

PATIENT
  Age: 57 Year
  Sex: Female

DRUGS (3)
  1. METFORMIN [Concomitant]
  2. JANUMET [Concomitant]
  3. ATENOLOL [Suspect]

REACTIONS (1)
  - CEREBROVASCULAR ACCIDENT [None]
